FAERS Safety Report 17831476 (Version 7)
Quarter: 2020Q3

REPORT INFORMATION
  Report Type: Spontaneous
  Country: PT (occurrence: PT)
  Receive Date: 20200528
  Receipt Date: 20200909
  Transmission Date: 20201103
  Serious: Yes (Hospitalization, Other)
  Sender: FDA-Public Use
  Company Number: PT-AUROBINDO-AUR-APL-2020-024870

PATIENT
  Age: 72 Year
  Sex: Male

DRUGS (8)
  1. METFORMIN [Concomitant]
     Active Substance: METFORMIN HYDROCHLORIDE
     Indication: ANXIETY DISORDER
     Dosage: 1000 MILLIGRAM (ID)
     Route: 065
  2. ALFUZOSIN 10MG [Suspect]
     Active Substance: ALFUZOSIN
     Indication: BENIGN PROSTATIC HYPERPLASIA
     Dosage: 10 MILLIGRAM
     Route: 065
  3. MEMANTINE. [Suspect]
     Active Substance: MEMANTINE
     Indication: DEMENTIA ALZHEIMER^S TYPE
     Dosage: UNK
     Route: 065
  4. DONEPEZIL. [Suspect]
     Active Substance: DONEPEZIL
     Indication: DEMENTIA ALZHEIMER^S TYPE
     Dosage: UNK
     Route: 065
  5. SITAGLIPTIN [Concomitant]
     Active Substance: SITAGLIPTIN
     Indication: PRODUCT USED FOR UNKNOWN INDICATION
     Dosage: 50 MILLIGRAM (2 ID)
     Route: 065
  6. ESCITALOPRAM [Concomitant]
     Active Substance: ESCITALOPRAM OXALATE
     Indication: ANXIETY DISORDER
     Dosage: 10 MILLIGRAM
     Route: 065
  7. DARIFENACIN HYDROBROMIDE. [Suspect]
     Active Substance: DARIFENACIN HYDROBROMIDE
     Indication: PRODUCT USED FOR UNKNOWN INDICATION
     Dosage: 7.5 MILLIGRAM
     Route: 065
     Dates: start: 201603
  8. ESCITALOPRAM [Suspect]
     Active Substance: ESCITALOPRAM OXALATE
     Indication: ANXIETY DISORDER
     Dosage: 10 MILLIGRAM
     Route: 065

REACTIONS (18)
  - Dry mouth [Unknown]
  - Prostatomegaly [Unknown]
  - Hydronephrosis [Unknown]
  - Hyperphagia [Recovered/Resolved]
  - Abdominal discomfort [Unknown]
  - Urinary incontinence [Unknown]
  - Hypernatraemia [Recovered/Resolved]
  - Hyperglycaemic hyperosmolar nonketotic syndrome [Recovered/Resolved]
  - Therapeutic response decreased [Unknown]
  - Acute kidney injury [Recovered/Resolved]
  - Delirium [Recovered/Resolved]
  - Ketonuria [Recovered/Resolved]
  - Pollakiuria [Unknown]
  - Proteinuria [Recovered/Resolved]
  - Gastrointestinal disorder [Recovered/Resolved]
  - Polydipsia [Recovered/Resolved]
  - Drug intolerance [Unknown]
  - Weight decreased [Recovered/Resolved]

NARRATIVE: CASE EVENT DATE: 20151123
